FAERS Safety Report 6247224-9 (Version None)
Quarter: 2009Q2

REPORT INFORMATION
  Report Type: 
  Country: None (occurrence: None)
  Receive Date: 20090626
  Receipt Date: 20090518
  Transmission Date: 20091009
  Serious: Yes (Other)
  Sender: FDA-Public Use
  Company Number: GB-PFIZER INC-2009214224

PATIENT
  Age: 71 Year

DRUGS (2)
  1. INSPRA [Suspect]
     Indication: BREAST CANCER
  2. AROMASIN [Suspect]
     Indication: BREAST CANCER

REACTIONS (6)
  - BLOOD SODIUM DECREASED [None]
  - BREAST CANCER [None]
  - CONFUSIONAL STATE [None]
  - DRUG DISPENSING ERROR [None]
  - DYSPHEMIA [None]
  - METASTASES TO BONE [None]
